FAERS Safety Report 12602160 (Version 1)
Quarter: 2016Q3

REPORT INFORMATION
  Report Type: Spontaneous
  Country: US (occurrence: US)
  Receive Date: 20160728
  Receipt Date: 20160728
  Transmission Date: 20161109
  Serious: No
  Sender: FDA-Public Use
  Company Number: US-BEH-2015056967

PATIENT
  Age: 51 Year
  Sex: Female

DRUGS (1)
  1. ZEMAIRA [Suspect]
     Active Substance: .ALPHA.1-PROTEINASE INHIBITOR HUMAN
     Indication: ALPHA-1 ANTI-TRYPSIN DEFICIENCY
     Dosage: 1048 U
     Route: 042
     Dates: start: 20141006

REACTIONS (4)
  - Device infusion issue [Unknown]
  - Headache [Recovered/Resolved]
  - Chest discomfort [Recovered/Resolved]
  - Vision blurred [Recovered/Resolved]
